FAERS Safety Report 26088845 (Version 2)
Quarter: 2025Q4

REPORT INFORMATION
  Report Type: Spontaneous
  Country: US (occurrence: US)
  Receive Date: 20251125
  Receipt Date: 20251230
  Transmission Date: 20260117
  Serious: No
  Sender: NEUROCRINE BIOSCIENCES
  Company Number: US-NBI-NBI-US-5426-2025

PATIENT
  Sex: Male
  Weight: 68.19 kg

DRUGS (3)
  1. CRENESSITY [Suspect]
     Active Substance: CRINECERFONT
     Indication: Adrenogenital syndrome
     Dosage: 100 MILLIGRAM, BID WITH FOOD
     Route: 061
  2. HYDROCORTISONE [Concomitant]
     Active Substance: HYDROCORTISONE
     Dosage: 7.5MG AM, 2.5MG AT LUNCH, 2.5MG AT DINNER, 5MG AT BEDTIME
  3. FLUDROCORTISONE [Concomitant]
     Active Substance: FLUDROCORTISONE

REACTIONS (1)
  - Urticaria [Recovered/Resolved]
